FAERS Safety Report 24374991 (Version 1)
Quarter: 2024Q3

REPORT INFORMATION
  Report Type: Spontaneous
  Country: US (occurrence: US)
  Receive Date: 20240927
  Receipt Date: 20240927
  Transmission Date: 20241017
  Serious: No
  Sender: EMD SERONO INC
  Company Number: US-Merck Healthcare KGaA-2024050620

PATIENT
  Sex: Female

DRUGS (2)
  1. MAVENCLAD [Suspect]
     Active Substance: CLADRIBINE
     Indication: Multiple sclerosis
     Dosage: MAVENCLAD IN YEAR 1  THERAPY
     Route: 048
     Dates: start: 20231127
  2. TRAMADOL [Concomitant]
     Active Substance: TRAMADOL
     Indication: Headache

REACTIONS (3)
  - Gait inability [Unknown]
  - Fatigue [Unknown]
  - Ill-defined disorder [Unknown]
